FAERS Safety Report 24891792 (Version 1)
Quarter: 2025Q1

REPORT INFORMATION
  Report Type: Spontaneous
  Country: KR (occurrence: KR)
  Receive Date: 20250127
  Receipt Date: 20250127
  Transmission Date: 20250408
  Serious: Yes (Death)
  Sender: MALLINCKRODT
  Company Number: KR-MALLINCKRODT-MNK202500370

PATIENT
  Age: 0 Year

DRUGS (3)
  1. NITRIC OXIDE [Suspect]
     Active Substance: NITRIC OXIDE
     Indication: Newborn persistent pulmonary hypertension
     Route: 055
     Dates: start: 20250116, end: 20250117
  2. NITRIC OXIDE [Suspect]
     Active Substance: NITRIC OXIDE
     Indication: Neonatal respiratory distress syndrome
  3. NITRIC OXIDE [Suspect]
     Active Substance: NITRIC OXIDE
     Indication: Pneumothorax

REACTIONS (4)
  - Condition aggravated [Fatal]
  - Neonatal respiratory distress syndrome [Fatal]
  - Newborn persistent pulmonary hypertension [Fatal]
  - Pneumothorax [Fatal]

NARRATIVE: CASE EVENT DATE: 20250101
